FAERS Safety Report 15280349 (Version 1)
Quarter: 2018Q3

REPORT INFORMATION
  Report Type: Spontaneous
  Country: US (occurrence: US)
  Receive Date: 20180730
  Receipt Date: 20180730
  Transmission Date: 20181010
  Serious: Yes (Other)
  Sender: FDA-Public Use
  Company Number: None

PATIENT
  Age: 39 Year
  Sex: Female
  Weight: 60.75 kg

DRUGS (1)
  1. BENZONATATE 200MG [Suspect]
     Active Substance: BENZONATATE
     Indication: COUGH
     Dosage: ?          QUANTITY:1 CAPSULE(S);?
     Route: 048
     Dates: start: 20180726, end: 20180730

REACTIONS (4)
  - Vision blurred [None]
  - Drug ineffective [None]
  - Visual impairment [None]
  - Hallucination [None]

NARRATIVE: CASE EVENT DATE: 20180730
